FAERS Safety Report 9311837 (Version 1)
Quarter: 2013Q2

REPORT INFORMATION
  Report Type: Spontaneous
  Country: CH (occurrence: CH)
  Receive Date: 20130528
  Receipt Date: 20130528
  Transmission Date: 20140414
  Serious: Yes (Other)
  Sender: FDA-Public Use
  Company Number: PHHY2013CH050030

PATIENT
  Age: 75 Year
  Sex: Female

DRUGS (1)
  1. ZOLEDRONATE [Suspect]
     Indication: OSTEOPOROSIS
     Dosage: UKN
     Route: 042

REACTIONS (8)
  - Iridocyclitis [Recovered/Resolved]
  - Chorioretinal disorder [Recovering/Resolving]
  - Parophthalmia [Recovered/Resolved]
  - Eye swelling [Recovering/Resolving]
  - Exophthalmos [Recovered/Resolved]
  - Conjunctival hyperaemia [Recovering/Resolving]
  - Eye pain [Recovering/Resolving]
  - Visual acuity reduced [Recovering/Resolving]
